FAERS Safety Report 14842903 (Version 1)
Quarter: 2018Q2

REPORT INFORMATION
  Report Type: Spontaneous
  Country: FR (occurrence: FR)
  Receive Date: 20180503
  Receipt Date: 20180503
  Transmission Date: 20180711
  Serious: Yes (Hospitalization)
  Sender: FDA-Public Use
  Company Number: FR-PFIZER INC-2018175116

PATIENT
  Age: 72 Year
  Sex: Female
  Weight: 56 kg

DRUGS (5)
  1. CARBOPLATINE HOSPIRA [Suspect]
     Active Substance: CARBOPLATIN
     Indication: MANTLE CELL LYMPHOMA
     Dosage: 195 MG, UNK
     Route: 042
     Dates: start: 20171230, end: 20171230
  2. RIFAMPICINE [Suspect]
     Active Substance: RIFAMPIN
     Indication: MYCOBACTERIAL INFECTION
     Dosage: 300 MG, UNK
     Route: 048
     Dates: start: 201701, end: 20171230
  3. ZECLAR [Suspect]
     Active Substance: CLARITHROMYCIN
     Indication: MYCOBACTERIAL INFECTION
     Dosage: 1000 MG, UNK
     Route: 048
     Dates: start: 201701
  4. ETOPOPHOS [Suspect]
     Active Substance: ETOPOSIDE PHOSPHATE
     Indication: MANTLE CELL LYMPHOMA
     Dosage: 100 MG, UNK
     Route: 042
     Dates: start: 20171229, end: 20171231
  5. HOLOXAN [Suspect]
     Active Substance: IFOSFAMIDE
     Indication: MANTLE CELL LYMPHOMA
     Dosage: 1680 MG, UNK
     Route: 042
     Dates: start: 20171230, end: 20171230

REACTIONS (3)
  - Aplasia [Recovered/Resolved]
  - Confusional state [Recovered/Resolved]
  - Hemiparesis [Recovered/Resolved]

NARRATIVE: CASE EVENT DATE: 20171230
